FAERS Safety Report 15032267 (Version 8)
Quarter: 2019Q3

REPORT INFORMATION
  Report Type: Spontaneous
  Country: US (occurrence: US)
  Receive Date: 20180619
  Receipt Date: 20190726
  Transmission Date: 20191004
  Serious: Yes (Life-Threatening, Hospitalization)
  Sender: FDA-Public Use
  Company Number: US-ACTELION-A-US2018-173922

PATIENT
  Age: 78 Year
  Sex: Female

DRUGS (3)
  1. OPSUMIT [Suspect]
     Active Substance: MACITENTAN
     Indication: PULMONARY ARTERIAL HYPERTENSION
     Dosage: 10 MG, QD
     Route: 048
     Dates: start: 20180516
  2. UPTRAVI [Suspect]
     Active Substance: SELEXIPAG
     Indication: PULMONARY ARTERIAL HYPERTENSION
     Dosage: 200 MCG, BID
     Route: 048
  3. UPTRAVI [Suspect]
     Active Substance: SELEXIPAG
     Dosage: 400 MCG, BID
     Route: 048
     Dates: start: 20180517

REACTIONS (11)
  - Anaemia [Unknown]
  - Headache [Unknown]
  - Dyspnoea [Unknown]
  - Hypotension [Unknown]
  - Fluid retention [Unknown]
  - Therapeutic procedure [Unknown]
  - Decreased appetite [Unknown]
  - Rehabilitation therapy [Unknown]
  - Blood count abnormal [Unknown]
  - Transfusion [Unknown]
  - Nausea [Unknown]

NARRATIVE: CASE EVENT DATE: 20180624
